FAERS Safety Report 24924712 (Version 1)
Quarter: 2025Q1

REPORT INFORMATION
  Report Type: Report from Study
  Country: US (occurrence: US)
  Receive Date: 20250204
  Receipt Date: 20250204
  Transmission Date: 20250408
  Serious: No
  Sender: EXELIXIS
  Company Number: US-EXELIXIS-CABO-24075570

PATIENT
  Age: 68 Year
  Sex: Male

DRUGS (10)
  1. CABOMETYX [Suspect]
     Active Substance: CABOZANTINIB S-MALATE
     Indication: Renal cell carcinoma
     Dosage: 40 MG, QD
     Dates: start: 20240228
  2. OPDIVO [Suspect]
     Active Substance: NIVOLUMAB
     Indication: Renal cell carcinoma
     Dosage: UNK, Q4WEEKS
     Dates: start: 20240228
  3. TYLENOL [Concomitant]
     Active Substance: ACETAMINOPHEN
  4. EZETIMIBE [Concomitant]
     Active Substance: EZETIMIBE
  5. ROSUVASTATIN [Concomitant]
     Active Substance: ROSUVASTATIN
  6. CYCLOBENZAPRINE [Concomitant]
     Active Substance: CYCLOBENZAPRINE
  7. VITAMINS [Concomitant]
     Active Substance: VITAMINS
  8. VITAMIN D [Concomitant]
     Active Substance: VITAMIN D NOS
  9. VITAMIN C [Concomitant]
     Active Substance: ASCORBIC ACID
  10. LOPERAMIDE [Concomitant]
     Active Substance: LOPERAMIDE

REACTIONS (13)
  - Blood pressure increased [Not Recovered/Not Resolved]
  - Rash macular [Not Recovered/Not Resolved]
  - Decreased appetite [Not Recovered/Not Resolved]
  - Weight decreased [Not Recovered/Not Resolved]
  - Diarrhoea [Not Recovered/Not Resolved]
  - Dysgeusia [Not Recovered/Not Resolved]
  - Fatigue [Not Recovered/Not Resolved]
  - Nausea [Recovered/Resolved]
  - Swelling face [Not Recovered/Not Resolved]
  - Muscle injury [Recovering/Resolving]
  - Myalgia [Not Recovered/Not Resolved]
  - Emotional distress [Unknown]
  - Loss of personal independence in daily activities [Unknown]

NARRATIVE: CASE EVENT DATE: 20240418
